FAERS Safety Report 4566434-X (Version None)
Quarter: 2005Q1

REPORT INFORMATION
  Report Type: 
  Country: None (occurrence: None)
  Receive Date: 20050128
  Receipt Date: 20050111
  Transmission Date: 20050727
  Serious: Yes (Hospitalization)
  Sender: FDA-Public Use
  Company Number: 203627

PATIENT
  Age: 66 Year
  Sex: Female

DRUGS (12)
  1. AVONEX [Suspect]
     Indication: MULTIPLE SCLEROSIS
     Dosage: 30 UG; QW; IM
     Route: 030
     Dates: start: 19991101, end: 20031001
  2. AVONEX [Suspect]
     Dosage: 30 UG; QW;  IM
     Route: 030
     Dates: start: 20031001
  3. CALCIUM GLUCONATE [Concomitant]
  4. VITAMIN D [Concomitant]
  5. PROVIGIL [Concomitant]
  6. OXYBUTYNIN [Concomitant]
  7. FOSAMAX [Concomitant]
  8. DIOVAN [Concomitant]
  9. NORVASC [Concomitant]
  10. NEURONTIN [Concomitant]
  11. NAPROXEN [Concomitant]
  12. PEPCID [Concomitant]

REACTIONS (2)
  - HYPERCALCAEMIA [None]
  - MILK-ALKALI SYNDROME [None]
